FAERS Safety Report 6326169-X (Version None)
Quarter: 2009Q3

REPORT INFORMATION
  Report Type: 
  Country: None (occurrence: None)
  Receive Date: 20090824
  Receipt Date: 20090811
  Transmission Date: 20100115
  Serious: Yes (Hospitalization)
  Sender: FDA-Public Use
  Company Number: US-MYLANLABS-2009S1014234

PATIENT
  Age: 54 Year
  Sex: Male

DRUGS (4)
  1. PREDNISONE TAB [Suspect]
     Indication: DEMYELINATING POLYNEUROPATHY
     Dosage: HIGH-DOSE PREDNISONE
  2. MYCOPHENOLATE MOFETIL [Suspect]
     Indication: DEMYELINATING POLYNEUROPATHY
  3. WARFARIN [Suspect]
     Indication: PROTEIN S DEFICIENCY
  4. IMMUNE GLOBULIN NOS [Concomitant]
     Indication: DEMYELINATING POLYNEUROPATHY
     Dosage: MONTHLY INTRAVENOUS IMMUNE GLOBULIN INFUSIONS
     Route: 041

REACTIONS (1)
  - CALCIPHYLAXIS [None]
